FAERS Safety Report 7047040-4 (Version None)
Quarter: 2010Q4

REPORT INFORMATION
  Report Type: 
  Country: None (occurrence: None)
  Receive Date: 20101012
  Receipt Date: 20100927
  Transmission Date: 20110411
  Serious: Yes (Congenital Anomaly, Other)
  Sender: FDA-Public Use
  Company Number: AUR-APL-2010-01750

PATIENT

DRUGS (1)
  1. PAROXETINE (1A FARMA) [Suspect]
     Indication: ANTIDEPRESSANT THERAPY
     Dosage: 20MG,QD,TRANSPLACENTAL
     Route: 064

REACTIONS (4)
  - ABORTION INDUCED [None]
  - FOETAL DISORDER [None]
  - MATERNAL DRUGS AFFECTING FOETUS [None]
  - NEOPLASM [None]
